FAERS Safety Report 16032382 (Version 2)
Quarter: 2019Q1

REPORT INFORMATION
  Report Type: Spontaneous
  Country: RU (occurrence: RU)
  Receive Date: 20190304
  Receipt Date: 20190327
  Transmission Date: 20190418
  Serious: Yes (Hospitalization)
  Sender: FDA-Public Use
  Company Number: PHHY2019RU048544

PATIENT
  Age: 27 Year
  Sex: Female

DRUGS (3)
  1. LINEX [Suspect]
     Active Substance: LACTOBACILLUS ACIDOPHILUS
     Indication: NAUSEA
  2. LINEX [Suspect]
     Active Substance: LACTOBACILLUS ACIDOPHILUS
     Indication: ABDOMINAL DISCOMFORT
     Dosage: 1 DF, UNK
     Route: 048
     Dates: start: 20190216, end: 20190216
  3. AMOKSIKLAV [Suspect]
     Active Substance: AMOXICILLIN\CLAVULANATE POTASSIUM
     Indication: PRODUCT USED FOR UNKNOWN INDICATION
     Dosage: 1 DF, QD (850+125)
     Route: 048
     Dates: start: 20190216, end: 20190217

REACTIONS (10)
  - Erythema [Not Recovered/Not Resolved]
  - Hypersensitivity [Not Recovered/Not Resolved]
  - Rash [Not Recovered/Not Resolved]
  - Pyrexia [Not Recovered/Not Resolved]
  - Retching [Not Recovered/Not Resolved]
  - Pruritus [Not Recovered/Not Resolved]
  - Nausea [Not Recovered/Not Resolved]
  - Asthenia [Not Recovered/Not Resolved]
  - Face oedema [Not Recovered/Not Resolved]
  - Somnolence [Unknown]

NARRATIVE: CASE EVENT DATE: 20190217
